FAERS Safety Report 24434581 (Version 2)
Quarter: 2024Q4

REPORT INFORMATION
  Report Type: Report from Study
  Country: BR (occurrence: BR)
  Receive Date: 20241014
  Receipt Date: 20241023
  Transmission Date: 20250114
  Serious: Yes (Death, Hospitalization, Other)
  Sender: UCB
  Company Number: BR-UCBSA-2024052836

PATIENT
  Sex: Female

DRUGS (12)
  1. CERTOLIZUMAB PEGOL [Suspect]
     Active Substance: CERTOLIZUMAB PEGOL
     Indication: Rheumatoid arthritis
     Dosage: 400 MILLIGRAM, EV 4 WEEKS
     Route: 058
     Dates: start: 2023
  2. CERTOLIZUMAB PEGOL [Suspect]
     Active Substance: CERTOLIZUMAB PEGOL
     Indication: Osteoporosis
     Dosage: 20 MICROGRAM PER DAY
     Route: 058
     Dates: end: 202407
  3. CHONDROITIN SULFATE (BOVINE)\GLUCOSAMINE SULFATE [Concomitant]
     Active Substance: CHONDROITIN SULFATE (BOVINE)\GLUCOSAMINE SULFATE
     Indication: Osteoarthritis
     Dosage: 900 MILLIGRAM, 3X/DAY (TID)
  4. DIPYRONE [Concomitant]
     Active Substance: DIPYRONE
     Indication: Pain
     Dosage: UNK; 1 OR 2 TIMES A DAY
  5. CALCIUM [Concomitant]
     Active Substance: CALCIUM
     Indication: Osteoporosis
     Dosage: 500 MILLIGRAM, ONCE DAILY (QD)
  6. ESIUM [Concomitant]
     Indication: Prophylaxis
     Dosage: 20 MILLIGRAM
  7. ROSUVASTATIN [Concomitant]
     Active Substance: ROSUVASTATIN
     Indication: Blood cholesterol
     Dosage: 20 MILLIGRAM, ONCE DAILY (QD)
  8. CAPTOPRIL [Concomitant]
     Active Substance: CAPTOPRIL
     Indication: Blood pressure abnormal
     Dosage: 50 MILLIGRAM, ONCE DAILY (QD)
  9. PROPRANOLOL HYDROCHLORIDE [Concomitant]
     Active Substance: PROPRANOLOL HYDROCHLORIDE
     Indication: Hypotension
     Dosage: 10 MILLIGRAM, 2X/DAY (BID)
  10. PROPRANOLOL HYDROCHLORIDE [Concomitant]
     Active Substance: PROPRANOLOL HYDROCHLORIDE
     Indication: Varices oesophageal
  11. DOMPERIDONE [Concomitant]
     Active Substance: DOMPERIDONE
     Indication: Dyspepsia
     Dosage: 10 MILLIGRAM, ONCE DAILY (QD)
  12. CREON [Concomitant]
     Active Substance: PANCRELIPASE AMYLASE\PANCRELIPASE LIPASE\PANCRELIPASE PROTEASE
     Indication: Infrequent bowel movements
     Dosage: UNK

REACTIONS (10)
  - Cardiogenic shock [Fatal]
  - Bradycardia [Fatal]
  - Coma [Fatal]
  - Senile dementia [Fatal]
  - Rheumatoid arthritis [Unknown]
  - Urinary tract infection [Unknown]
  - Delusion [Unknown]
  - Pneumonia [Unknown]
  - Pleural effusion [Unknown]
  - Product use in unapproved indication [Unknown]

NARRATIVE: CASE EVENT DATE: 20230101
